FAERS Safety Report 18525393 (Version 1)
Quarter: 2020Q4

REPORT INFORMATION
  Report Type: Spontaneous
  Country: CA (occurrence: CA)
  Receive Date: 20201119
  Receipt Date: 20201119
  Transmission Date: 20210114
  Serious: Yes (Other)
  Sender: FDA-Public Use
  Company Number: CA-ALLERGAN-1931034US

PATIENT
  Sex: Female
  Weight: 55 kg

DRUGS (19)
  1. OMALIZUMAB. [Suspect]
     Active Substance: OMALIZUMAB
     Dosage: 300 MG, UNKNOWN
     Route: 058
  2. OMALIZUMAB. [Suspect]
     Active Substance: OMALIZUMAB
     Indication: ASTHMA
     Dosage: 150 MG
     Route: 058
     Dates: start: 20190115
  3. OMALIZUMAB. [Suspect]
     Active Substance: OMALIZUMAB
     Dosage: 300 MG, UNKNOWN
     Route: 058
  4. OMALIZUMAB. [Suspect]
     Active Substance: OMALIZUMAB
     Dosage: 300 MG, UNKNOWN
     Route: 058
  5. OMALIZUMAB. [Suspect]
     Active Substance: OMALIZUMAB
     Dosage: 150 MG, UNKNOWN
     Route: 058
  6. OMALIZUMAB. [Suspect]
     Active Substance: OMALIZUMAB
     Dosage: 300 MG, UNKNOWN
     Route: 058
  7. OMALIZUMAB. [Suspect]
     Active Substance: OMALIZUMAB
     Dosage: 300 MG, UNKNOWN
     Route: 058
  8. INFLUENZA VACCINES [Concomitant]
     Active Substance: INFLUENZA VIRUS VACCINE
     Indication: PRODUCT USED FOR UNKNOWN INDICATION
     Dosage: UNK
     Route: 065
     Dates: start: 20181114
  9. WELLBUTRIN [Concomitant]
     Active Substance: BUPROPION HYDROCHLORIDE
     Dosage: UNK
     Route: 048
  10. OMALIZUMAB. [Suspect]
     Active Substance: OMALIZUMAB
     Dosage: 300 MG, UNKNOWN
     Route: 058
  11. OMALIZUMAB. [Suspect]
     Active Substance: OMALIZUMAB
     Dosage: 300 MG, UNKNOWN
     Route: 058
  12. OMALIZUMAB. [Suspect]
     Active Substance: OMALIZUMAB
     Dosage: 300 MG, UNKNOWN
     Route: 058
  13. WELLBUTRIN [Concomitant]
     Active Substance: BUPROPION HYDROCHLORIDE
     Dosage: UNK
     Route: 048
  14. QUETIAPINE. [Concomitant]
     Active Substance: QUETIAPINE
  15. OMALIZUMAB. [Suspect]
     Active Substance: OMALIZUMAB
     Dosage: 150 MG, UNKNOWN
     Route: 058
  16. SYNTHROID [Concomitant]
     Active Substance: LEVOTHYROXINE SODIUM
     Indication: PRODUCT USED FOR UNKNOWN INDICATION
     Dosage: 0.05 MG, UNKNOWN
     Route: 065
     Dates: start: 20170118
  17. CITALOPRAM HYDROBROMIDE - BP [Suspect]
     Active Substance: CITALOPRAM HYDROBROMIDE
     Indication: PRODUCT USED FOR UNKNOWN INDICATION
     Dosage: 1 DF, QD
     Route: 065
  18. OMALIZUMAB. [Suspect]
     Active Substance: OMALIZUMAB
     Dosage: 150 MG, UNKNOWN
     Route: 058
  19. WELLBUTRIN [Concomitant]
     Active Substance: BUPROPION HYDROCHLORIDE
     Dosage: UNK
     Route: 048
     Dates: start: 20190123

REACTIONS (32)
  - Nasal pruritus [Unknown]
  - Nasopharyngitis [Not Recovered/Not Resolved]
  - Asthma [Unknown]
  - Cough [Unknown]
  - Dyspnoea [Unknown]
  - Fatigue [Unknown]
  - Nasal congestion [Unknown]
  - Respiratory rate increased [Unknown]
  - Sinus congestion [Unknown]
  - Spirometry abnormal [Unknown]
  - Sputum discoloured [Not Recovered/Not Resolved]
  - Pyrexia [Unknown]
  - Blood pressure increased [Unknown]
  - Rhinorrhoea [Recovering/Resolving]
  - Tooth infection [Unknown]
  - Haemoptysis [Not Recovered/Not Resolved]
  - Productive cough [Unknown]
  - Tooth fracture [Unknown]
  - Nervousness [Unknown]
  - Oropharyngeal pain [Not Recovered/Not Resolved]
  - Pneumonia [Recovered/Resolved]
  - Fear [Unknown]
  - Stress [Unknown]
  - Wheezing [Recovered/Resolved]
  - Anxiety [Unknown]
  - Pharyngitis [Unknown]
  - Influenza [Unknown]
  - Chest discomfort [Unknown]
  - Dyspnoea exertional [Unknown]
  - Inflammatory bowel disease [Unknown]
  - Depression [Unknown]
  - Bronchitis [Unknown]

NARRATIVE: CASE EVENT DATE: 20070226
